FAERS Safety Report 8978145 (Version 1)
Quarter: 2012Q4

REPORT INFORMATION
  Report Type: 
  Country: GB (occurrence: GB)
  Receive Date: 20121220
  Receipt Date: 20121220
  Transmission Date: 20130627
  Serious: Yes (Other)
  Sender: FDA-Public Use
  Company Number: PHHY2012GB115978

PATIENT
  Age: 80 Year
  Sex: Male
  Weight: 99.1 kg

DRUGS (18)
  1. PRAVASTATIN [Suspect]
     Indication: BLOOD CHOLESTEROL INCREASED
     Dosage: 20 mg, QD
     Dates: start: 20080731, end: 20090316
  2. SIMVASTATIN [Suspect]
     Indication: BLOOD CHOLESTEROL INCREASED
     Dosage: 40 mg, QD
     Dates: start: 20080317, end: 20080528
  3. BISOPROLOL [Concomitant]
     Dosage: 5 mg, QD
  4. METFORMIN [Concomitant]
     Dosage: 500 mg, QD
  5. SENNA [Concomitant]
  6. VENTOLIN                           /00942701/ [Concomitant]
     Route: 055
  7. SALMETEROL [Concomitant]
     Route: 055
  8. FINASTERIDE [Concomitant]
  9. PREDNISOLONE [Concomitant]
     Dosage: 10 mg, UNK
  10. PEPTAC [Concomitant]
  11. TIOTROPIUM BROMIDE [Concomitant]
     Route: 055
  12. ASPIRIN [Concomitant]
     Dosage: 300 mg, QD
  13. GLICLAZIDE [Concomitant]
     Dosage: 80 mg, QD
  14. ALENDRONIC ACID [Concomitant]
  15. VITAMIN B3 [Concomitant]
  16. COENZYME Q10 [Concomitant]
  17. DIPROBASE [Concomitant]
  18. ISPAGHULA HUSK [Concomitant]

REACTIONS (10)
  - Cognitive disorder [Not Recovered/Not Resolved]
  - Hypoaesthesia [Not Recovered/Not Resolved]
  - Myalgia [Not Recovered/Not Resolved]
  - Arthralgia [Not Recovered/Not Resolved]
  - Mobility decreased [Not Recovered/Not Resolved]
  - Fatigue [Not Recovered/Not Resolved]
  - Insomnia [Not Recovered/Not Resolved]
  - Amnesia [Not Recovered/Not Resolved]
  - Muscular weakness [Not Recovered/Not Resolved]
  - Malaise [Not Recovered/Not Resolved]
